FAERS Safety Report 5929675-2 (Version None)
Quarter: 2008Q4

REPORT INFORMATION
  Report Type: 
  Country: None (occurrence: None)
  Receive Date: 20080929
  Receipt Date: 20080712
  Transmission Date: 20090506
  Serious: No
  Sender: FDA-Public Use
  Company Number: PHEH2008US06219

PATIENT

DRUGS (1)
  1. TASIGNA [Suspect]

REACTIONS (3)
  - PRURITUS [None]
  - RASH [None]
  - SWELLING FACE [None]
